FAERS Safety Report 13214661 (Version 1)
Quarter: 2017Q1

REPORT INFORMATION
  Report Type: Report from Study
  Country: None (occurrence: DO)
  Receive Date: 20170209
  Receipt Date: 20170209
  Transmission Date: 20170428
  Serious: Yes (Death)
  Sender: FDA-Public Use
  Company Number: DO-ABBVIE-17P-279-1866024-00

PATIENT
  Age: 62 Year
  Sex: Male

DRUGS (1)
  1. ZEMPLAR [Suspect]
     Active Substance: PARICALCITOL
     Indication: HYPERPARATHYROIDISM SECONDARY
     Route: 042
     Dates: start: 20170203, end: 20170203

REACTIONS (2)
  - Multiple organ dysfunction syndrome [Fatal]
  - Respiratory failure [Fatal]

NARRATIVE: CASE EVENT DATE: 20170204
